FAERS Safety Report 20248995 (Version 2)
Quarter: 2022Q1

REPORT INFORMATION
  Report Type: Spontaneous
  Country: PL (occurrence: None)
  Receive Date: 20211229
  Receipt Date: 20220103
  Transmission Date: 20220424
  Serious: Yes (Other)
  Sender: FDA-Public Use
  Company Number: 2021A896413

PATIENT
  Age: 64 Year
  Sex: Male

DRUGS (4)
  1. QUETIAPINE [Suspect]
     Active Substance: QUETIAPINE
     Indication: Psychotic disorder
     Route: 048
  2. LEVODOPA [Concomitant]
     Active Substance: LEVODOPA
     Dosage: DAILY DOSE OF 400 MG,
     Route: 065
  3. ROPINIROLE [Concomitant]
     Active Substance: ROPINIROLE
     Dosage: DAILY DOSE OF 4 MG,
     Route: 065
  4. MELATONIN [Concomitant]
     Active Substance: MELATONIN
     Indication: Rapid eye movement sleep behaviour disorder
     Dosage: DAILY DOSE OF 6 MG,
     Route: 065

REACTIONS (1)
  - Aphasia [Recovered/Resolved]
